FAERS Safety Report 7293816-8 (Version None)
Quarter: 2011Q1

REPORT INFORMATION
  Report Type: 
  Country: None (occurrence: None)
  Receive Date: 20110203
  Receipt Date: 20110119
  Transmission Date: 20110831
  Serious: Yes (Death, Hospitalization)
  Sender: FDA-Public Use
  Company Number: 2011AL000003

PATIENT
  Age: 50 Year
  Sex: Male

DRUGS (6)
  1. AMLODIPINE [Concomitant]
  2. LISINOPRIL [Concomitant]
  3. FOLOTYN [Suspect]
     Indication: PERIPHERAL T-CELL LYMPHOMA UNSPECIFIED
     Dosage: 30 MG/M**2;QOW, IV
     Route: 042
     Dates: start: 20101105, end: 20101223
  4. SIMVASTATIN [Concomitant]
  5. TRAZODONE [Concomitant]
  6. NAPROXEN [Concomitant]

REACTIONS (9)
  - LOCALISED INTRAABDOMINAL FLUID COLLECTION [None]
  - CONDITION AGGRAVATED [None]
  - HEPATIC FAILURE [None]
  - TOXICITY TO VARIOUS AGENTS [None]
  - OROPHARYNGEAL PAIN [None]
  - NEOPLASM MALIGNANT [None]
  - METASTASES TO LIVER [None]
  - DYSPHAGIA [None]
  - PERIPHERAL T-CELL LYMPHOMA UNSPECIFIED [None]
